FAERS Safety Report 24094609 (Version 1)
Quarter: 2024Q3

REPORT INFORMATION
  Report Type: Spontaneous
  Country: US (occurrence: US)
  Receive Date: 20240716
  Receipt Date: 20240716
  Transmission Date: 20241016
  Serious: Yes (Other)
  Sender: STRIDES
  Company Number: US-STRIDES ARCOLAB LIMITED-2024SP000580

PATIENT
  Age: 58 Year
  Sex: Female

DRUGS (5)
  1. VERAPAMIL [Suspect]
     Active Substance: VERAPAMIL HYDROCHLORIDE
     Indication: Reversible cerebral vasoconstriction syndrome
     Dosage: UNK
     Route: 048
  2. NICARDIPINE [Concomitant]
     Active Substance: NICARDIPINE
     Indication: Reversible cerebral vasoconstriction syndrome
     Dosage: UNK
     Route: 013
  3. NICARDIPINE [Concomitant]
     Active Substance: NICARDIPINE
     Dosage: 4 MILLIGRAM, EVERY 12 HRS (INFUSIONS)
     Route: 037
  4. NICARDIPINE [Concomitant]
     Active Substance: NICARDIPINE
     Dosage: 5 MILLIGRAM PER HOUR (CONTINUOUS INFUSION)
     Route: 013
  5. NICARDIPINE [Concomitant]
     Active Substance: NICARDIPINE
     Dosage: 4 MILLIGRAM, EVERY 6 HRS
     Route: 037

REACTIONS (2)
  - Therapy non-responder [Unknown]
  - Off label use [Unknown]
